FAERS Safety Report 4789448-3 (Version None)
Quarter: 2005Q4

REPORT INFORMATION
  Report Type: 
  Country: None (occurrence: None)
  Receive Date: 20051004
  Receipt Date: 20051004
  Transmission Date: 20060501
  Serious: No
  Sender: FDA-Public Use
  Company Number: None

PATIENT
  Sex: Female

DRUGS (13)
  1. DIPHENHYDRAMINE HCL [Suspect]
     Indication: PRURITUS
     Dosage: 75 MG PO X 1
     Route: 048
  2. AMITRIPTYLINE HCL [Concomitant]
  3. WARFARIN SODIUM [Concomitant]
  4. INSULIN [Concomitant]
  5. HYDROCHLOROTHIAZIDE [Concomitant]
  6. LEVOTHYROXINE [Concomitant]
  7. QUINAPRIL [Concomitant]
  8. ATORVASTATIN CALCIUM [Concomitant]
  9. METOPROLOL [Concomitant]
  10. FERROUS SULFATE TAB [Concomitant]
  11. POTASSIUM CHLORIDE [Concomitant]
  12. FUROSEMIDE [Concomitant]
  13. DOCUSATE SODIUM [Concomitant]

REACTIONS (1)
  - MENTAL STATUS CHANGES [None]
